FAERS Safety Report 19372439 (Version 1)
Quarter: 2021Q2

REPORT INFORMATION
  Report Type: Spontaneous
  Country: US (occurrence: US)
  Receive Date: 20210604
  Receipt Date: 20210604
  Transmission Date: 20210717
  Serious: Yes (Hospitalization)
  Sender: FDA-Public Use
  Company Number: None

PATIENT
  Age: 73 Year
  Sex: Male
  Weight: 61.3 kg

DRUGS (11)
  1. TAXOL [Suspect]
     Active Substance: PACLITAXEL
     Dates: end: 20210419
  2. MAGNESIUM OXIDE 400MG [Concomitant]
     Active Substance: MAGNESIUM OXIDE
  3. ALBUTEROL SULFATE HFA [Concomitant]
     Active Substance: ALBUTEROL SULFATE
  4. SAXAGLIPTIN HCI 5MG [Concomitant]
  5. TOPIRAMATE 25MG [Concomitant]
     Active Substance: TOPIRAMATE
  6. BUPROPION HCI 150MG [Concomitant]
  7. METFORMIN [Concomitant]
     Active Substance: METFORMIN HYDROCHLORIDE
  8. PIOGLITAZONE 30MG [Concomitant]
     Active Substance: PIOGLITAZONE
  9. SUMATRIPTAN 100MG [Concomitant]
     Active Substance: SUMATRIPTAN
  10. CARBOPLATIN. [Suspect]
     Active Substance: CARBOPLATIN
     Dates: end: 20210419
  11. PROPRANOLOL [Concomitant]
     Active Substance: PROPRANOLOL HYDROCHLORIDE

REACTIONS (10)
  - Dysphagia [None]
  - Chest discomfort [None]
  - Chest pain [None]
  - Oesophagitis [None]
  - Decreased activity [None]
  - Oxygen saturation decreased [None]
  - Dyspnoea exertional [None]
  - Pneumonia [None]
  - Dyspnoea [None]
  - Asthenia [None]

NARRATIVE: CASE EVENT DATE: 20210506
